FAERS Safety Report 5171666-6 (Version None)
Quarter: 2006Q4

REPORT INFORMATION
  Report Type: 
  Country: None (occurrence: None)
  Receive Date: 20061205
  Receipt Date: 20061121
  Transmission Date: 20070319
  Serious: Yes (Hospitalization, Other)
  Sender: FDA-Public Use
  Company Number: 2006144457

PATIENT
  Age: 46 Year
  Sex: Female

DRUGS (17)
  1. LYRICA [Suspect]
     Indication: MIGRAINE
     Dosage: 3 IN 1 D
     Dates: start: 20060601, end: 20060801
  2. VANCOMYCIN [Suspect]
     Indication: CELLULITIS
     Dates: start: 20060501, end: 20060901
  3. PREVACID [Concomitant]
  4. TOPAMAX [Concomitant]
  5. MONTELUKAST SODIUM (MONTELUKAST SODIUM) [Concomitant]
  6. VYTORIN [Concomitant]
  7. EFFEXOR [Concomitant]
  8. LASIX [Concomitant]
  9. SYNTHROID [Concomitant]
  10. ZYRTEC [Concomitant]
  11. POTASSIUM (POTASSIUM) [Concomitant]
  12. ALBUTEROL [Concomitant]
  13. OXYCONTIN [Concomitant]
  14. PROVIGIL [Concomitant]
  15. ZANAFLEX [Concomitant]
  16. ADVAIR DISKUS 100/50 [Concomitant]
  17. FIORICET [Concomitant]

REACTIONS (11)
  - CELLULITIS [None]
  - DRUG HYPERSENSITIVITY [None]
  - DYSPEPSIA [None]
  - FLUID RETENTION [None]
  - GASTRIC DILATATION [None]
  - LYMPHOEDEMA [None]
  - MEMORY IMPAIRMENT [None]
  - OEDEMA PERIPHERAL [None]
  - URINARY RETENTION [None]
  - VENOUS INSUFFICIENCY [None]
  - WEIGHT INCREASED [None]
